FAERS Safety Report 12616591 (Version 1)
Quarter: 2016Q3

REPORT INFORMATION
  Report Type: Spontaneous
  Country: US (occurrence: US)
  Receive Date: 20160802
  Receipt Date: 20160802
  Transmission Date: 20161109
  Serious: No
  Sender: FDA-Public Use
  Company Number: US-IMPAX LABORATORIES, INC-2016-IPXL-00178

PATIENT
  Age: 67 Year
  Sex: Female
  Weight: 62.59 kg

DRUGS (7)
  1. BILTRICIDE [Concomitant]
     Active Substance: PRAZIQUANTEL
     Indication: PRODUCT USED FOR UNKNOWN INDICATION
     Dosage: UNK
     Route: 065
  2. ALBENZA [Suspect]
     Active Substance: ALBENDAZOLE
     Dosage: 2 TABLETS IN MORNING AND 2 TABLETS IN NIGHT
     Route: 048
     Dates: start: 20160209, end: 20160209
  3. ALBENZA [Suspect]
     Active Substance: ALBENDAZOLE
     Indication: INFECTION
     Dosage: 2 TABLETS ONCE IN TWO WEEKS AND AGAIN TWO TABLETS ONCE IN TWO WEEKS
     Route: 048
     Dates: start: 2012, end: 2012
  4. ALBENZA [Suspect]
     Active Substance: ALBENDAZOLE
     Dosage: 2 TABLETS IN MORNING AND 2 TABLETS IN NIGHT
     Route: 048
     Dates: start: 201601, end: 201601
  5. ALBENZA [Suspect]
     Active Substance: ALBENDAZOLE
     Dosage: 2 TABLETS ONCE IN TWO WEEKS AND AGAIN 2 TABLETS ONCE IN TWO WEEKS
     Route: 048
     Dates: start: 2014, end: 2014
  6. SYNTHROID [Concomitant]
     Active Substance: LEVOTHYROXINE SODIUM
     Indication: THYROID DISORDER
     Dosage: UNK
     Route: 048
  7. ASPIRIN. [Concomitant]
     Active Substance: ASPIRIN
     Indication: HEADACHE
     Dosage: 81 MG (TWO TABLET),ONCE
     Route: 048
     Dates: start: 20160209, end: 20160209

REACTIONS (4)
  - Disease recurrence [Unknown]
  - Fatigue [Recovered/Resolved]
  - Off label use [Unknown]
  - Dizziness [Recovered/Resolved]

NARRATIVE: CASE EVENT DATE: 20160209
